FAERS Safety Report 5131229-5 (Version None)
Quarter: 2006Q4

REPORT INFORMATION
  Report Type: 
  Country: None (occurrence: None)
  Receive Date: 20061017
  Receipt Date: 20061017
  Transmission Date: 20070319
  Serious: No
  Sender: FDA-Public Use
  Company Number: None

PATIENT
  Age: 62 Year
  Sex: Female
  Weight: 63.5036 kg

DRUGS (1)
  1. SYSTANE LUBRICANT EYE DROPS ALCON LABORATORIES, INC. [Suspect]
     Indication: KERATOCONJUNCTIVITIS SICCA
     Dosage: ONE DROP 7-8 TIMES/DAY OTHER
     Route: 050
     Dates: start: 20060103, end: 20061010

REACTIONS (3)
  - CATARACT [None]
  - VISION BLURRED [None]
  - VISUAL DISTURBANCE [None]
